FAERS Safety Report 7455271-4 (Version None)
Quarter: 2011Q2

REPORT INFORMATION
  Report Type: 
  Country: None (occurrence: None)
  Receive Date: 20110503
  Receipt Date: 20110426
  Transmission Date: 20111010
  Serious: Yes (Other)
  Sender: FDA-Public Use
  Company Number: PHHY2011HR35949

PATIENT
  Age: 34 Year
  Sex: Female

DRUGS (2)
  1. KEPPRA [Suspect]
     Indication: EPILEPSY
     Dosage: 2 DF, QD
     Dates: start: 20100501, end: 20100601
  2. TRILEPTAL [Suspect]
     Indication: EPILEPSY
     Dosage: 2 DF, QD
     Dates: start: 20100501, end: 20100601

REACTIONS (4)
  - GRAND MAL CONVULSION [None]
  - PSYCHOMOTOR SKILLS IMPAIRED [None]
  - CONFUSIONAL STATE [None]
  - TONGUE BITING [None]
